FAERS Safety Report 13977300 (Version 1)
Quarter: 2017Q3

REPORT INFORMATION
  Report Type: Spontaneous
  Country: US (occurrence: US)
  Receive Date: 20170915
  Receipt Date: 20170915
  Transmission Date: 20171128
  Serious: No
  Sender: FDA-Public Use
  Company Number: US-ROCHE-714575

PATIENT

DRUGS (1)
  1. HERCEPTIN [Suspect]
     Active Substance: TRASTUZUMAB
     Indication: PRODUCT USED FOR UNKNOWN INDICATION
     Dosage: REPORTED: PATIENT HAD 10 OUT OF 17HERCEPTIN TREATMENTS.
     Route: 065

REACTIONS (8)
  - Skin fissures [Unknown]
  - Haemorrhagic diathesis [Unknown]
  - Hot flush [Unknown]
  - Onychoclasis [Unknown]
  - Pain in extremity [Unknown]
  - Rhinorrhoea [Unknown]
  - Cough [Unknown]
  - Insomnia [Unknown]
